FAERS Safety Report 5873596-0 (Version None)
Quarter: 2008Q3

REPORT INFORMATION
  Report Type: 
  Country: None (occurrence: None)
  Receive Date: 20080908
  Receipt Date: 20080905
  Transmission Date: 20090109
  Serious: Yes (Hospitalization)
  Sender: FDA-Public Use
  Company Number: A0746050A

PATIENT
  Age: 43 Year
  Sex: Female

DRUGS (1)
  1. ALLI [Suspect]
     Indication: WEIGHT LOSS DIET
     Route: 048
     Dates: start: 20080601, end: 20080801

REACTIONS (17)
  - ANAEMIA [None]
  - DRUG INEFFECTIVE [None]
  - DYSPNOEA [None]
  - HYPOKINESIA [None]
  - JAUNDICE [None]
  - MIDDLE INSOMNIA [None]
  - MUSCULOSKELETAL CHEST PAIN [None]
  - NAUSEA [None]
  - PAIN [None]
  - RIB FRACTURE [None]
  - SKIN DISCOLOURATION [None]
  - SKIN LACERATION [None]
  - SKIN NECROSIS [None]
  - SKIN ULCER [None]
  - STAPHYLOCOCCAL BACTERAEMIA [None]
  - VOMITING [None]
  - WOUND INFECTION STAPHYLOCOCCAL [None]
